FAERS Safety Report 10257824 (Version 1)
Quarter: 2014Q2

REPORT INFORMATION
  Report Type: Spontaneous
  Country: TR (occurrence: None)
  Receive Date: 20140620
  Receipt Date: 20140620
  Transmission Date: 20141212
  Serious: Yes (Hospitalization)
  Sender: FDA-Public Use
  Company Number: SYM-2014-21712

PATIENT
  Age: 39 Year
  Sex: Female

DRUGS (3)
  1. NIFEDIPINE (NIFEDIPINE) (NIFEDIPINE) [Suspect]
     Indication: TOCOLYSIS
     Dosage: 120MG, 1 IN 4HR, ORAL
     Route: 048
  2. AMOXICILLIN (AMOXICILLIN) [Suspect]
     Dosage: 4MG, 1 IN 6 HR INTRAVENOUS
     Route: 042
  3. BETAMETHASONE [Suspect]
     Route: 030

REACTIONS (9)
  - Pulmonary oedema [None]
  - Cardiac arrest [None]
  - Respiratory arrest [None]
  - Pleural effusion [None]
  - Atelectasis [None]
  - Acute respiratory failure [None]
  - Back pain [None]
  - Chest pain [None]
  - Exposure during pregnancy [None]
